FAERS Safety Report 5271458-3 (Version None)
Quarter: 2007Q1

REPORT INFORMATION
  Report Type: 
  Country: None (occurrence: None)
  Receive Date: 20070321
  Receipt Date: 20070315
  Transmission Date: 20070707
  Serious: Yes (Life-Threatening)
  Sender: FDA-Public Use
  Company Number: BE-SHR-BE-SHR-04-021158

PATIENT
  Age: 65 Year
  Sex: Male

DRUGS (3)
  1. FLUDARA [Suspect]
     Dosage: 50 MG, CYCLE X 5D
     Route: 042
     Dates: start: 20031205, end: 20031209
  2. FLUDARA [Suspect]
     Dosage: 5 MG, CYCLE X 5D
     Route: 042
     Dates: start: 20040105, end: 20040109
  3. LITICAN [Concomitant]
     Dosage: 2 AMP, UNK

REACTIONS (1)
  - HAEMOLYTIC ANAEMIA [None]
